FAERS Safety Report 26011441 (Version 1)
Quarter: 2025Q4

REPORT INFORMATION
  Report Type: Spontaneous
  Country: US (occurrence: US)
  Receive Date: 20251107
  Receipt Date: 20251107
  Transmission Date: 20260118
  Serious: No
  Sender: MILLICENT HOLDINGS
  Company Number: US-Millicent Holdings Ltd.-MILL20250315

PATIENT
  Sex: Female

DRUGS (2)
  1. FEMRING [Suspect]
     Active Substance: ESTRADIOL ACETATE
     Indication: Blood oestrogen decreased
     Dosage: UNKNOWN
     Route: 067
     Dates: start: 20251004, end: 20251010
  2. FEMRING [Suspect]
     Active Substance: ESTRADIOL ACETATE
     Dosage: UNKNOWN
     Route: 067
     Dates: end: 20251004

REACTIONS (3)
  - Drug ineffective [Not Recovered/Not Resolved]
  - Vulvovaginal pruritus [Not Recovered/Not Resolved]
  - Product use complaint [Unknown]

NARRATIVE: CASE EVENT DATE: 20251004
